FAERS Safety Report 7958740-3 (Version None)
Quarter: 2011Q4

REPORT INFORMATION
  Report Type: 
  Country: None (occurrence: None)
  Receive Date: 20111206
  Receipt Date: 20111122
  Transmission Date: 20120403
  Serious: Yes (Hospitalization)
  Sender: FDA-Public Use
  Company Number: CA-JNJFOC-20111201409

PATIENT
  Sex: Female

DRUGS (3)
  1. REMICADE [Suspect]
     Indication: COLITIS ULCERATIVE
     Route: 042
     Dates: start: 20090716
  2. REMICADE [Suspect]
     Route: 042
     Dates: start: 20110811
  3. REMICADE [Suspect]
     Route: 042
     Dates: start: 20090703

REACTIONS (2)
  - FEELING COLD [None]
  - ILEOSTOMY [None]
